FAERS Safety Report 6253144-6 (Version None)
Quarter: 2009Q2

REPORT INFORMATION
  Report Type: 
  Country: None (occurrence: None)
  Receive Date: 20090626
  Receipt Date: 20080821
  Transmission Date: 20091009
  Serious: Yes (Disabling)
  Sender: FDA-Public Use
  Company Number: 582155

PATIENT
  Age: 78 Year
  Sex: Female
  Weight: 46.7 kg

DRUGS (9)
  1. XELODA [Suspect]
     Indication: BREAST CANCER METASTATIC
     Dosage: 1300 MG   2 PER DAY   ORAL
     Route: 048
     Dates: start: 20080613, end: 20080805
  2. ZOMETA [Suspect]
     Indication: OSTEOPOROSIS
     Dosage: 3.5 MG INTRAVENOUS
     Route: 042
     Dates: start: 20040622
  3. TAMOXIFEN CITRATE [Concomitant]
  4. ZETIA [Concomitant]
  5. LISINOPRIL [Concomitant]
  6. CALTRATE + D (*CALCIUM/*CALCIUM CARBONATE/*CHOLECALCIFEROL/*PARICALCIT [Concomitant]
  7. ASPIRIN [Concomitant]
  8. SYSTANE EYE DROPS (POLYETHYLENE GLYCOL/PROPYLENE GLYCOL) [Concomitant]
  9. VIT D (CHOLECALCIFEROL) [Concomitant]

REACTIONS (4)
  - DIARRHOEA [None]
  - PALMAR-PLANTAR ERYTHRODYSAESTHESIA SYNDROME [None]
  - SKIN FISSURES [None]
  - THROMBOCYTOPENIA [None]
